FAERS Safety Report 6278959-X (Version None)
Quarter: 2009Q3

REPORT INFORMATION
  Report Type: 
  Country: None (occurrence: None)
  Receive Date: 20090723
  Receipt Date: 20090716
  Transmission Date: 20100115
  Serious: Yes (Hospitalization)
  Sender: FDA-Public Use
  Company Number: US-ELI_LILLY_AND_COMPANY-US200907003620

PATIENT
  Sex: Female

DRUGS (2)
  1. HUMALOG MIX 75/25 [Suspect]
     Indication: TYPE 2 DIABETES MELLITUS
     Dosage: 35 U, 2/D
  2. HUMALOG MIX 75/25 [Suspect]
     Dosage: 35 U, 2/D
     Dates: start: 20090716

REACTIONS (7)
  - ARTHROPATHY [None]
  - FATIGUE [None]
  - HYPERTENSION [None]
  - INCORRECT DOSE ADMINISTERED [None]
  - SLEEP APNOEA SYNDROME [None]
  - VISION BLURRED [None]
  - VISUAL ACUITY REDUCED [None]
